FAERS Safety Report 11618964 (Version 1)
Quarter: 2015Q4

REPORT INFORMATION
  Report Type: Report from Study
  Country: US (occurrence: US)
  Receive Date: 20151012
  Receipt Date: 20151012
  Transmission Date: 20160304
  Serious: No
  Sender: FDA-Public Use
  Company Number: PHEH2015US019976

PATIENT
  Age: 59 Year
  Sex: Male

DRUGS (1)
  1. COSENTYX [Suspect]
     Active Substance: SECUKINUMAB
     Indication: PSORIASIS
     Dosage: 300 MG, QW (FIVE DOSES), FOLLOWED BY MONTHLY
     Route: 058
     Dates: start: 20150526

REACTIONS (6)
  - Dermatitis [Unknown]
  - Scratch [Unknown]
  - Rash [Unknown]
  - Pruritus [Unknown]
  - Skin haemorrhage [Unknown]
  - Psoriasis [Unknown]

NARRATIVE: CASE EVENT DATE: 20150722
